FAERS Safety Report 7799027-1 (Version None)
Quarter: 2011Q4

REPORT INFORMATION
  Report Type: 
  Country: None (occurrence: None)
  Receive Date: 20111005
  Receipt Date: 20111005
  Transmission Date: 20120403
  Serious: Yes (Hospitalization)
  Sender: FDA-Public Use
  Company Number: None

PATIENT
  Sex: Female
  Weight: 87.4 kg

DRUGS (15)
  1. BACTROBAN [Concomitant]
  2. TESSALON [Concomitant]
  3. ATENOLOL [Concomitant]
  4. COMPAZINE [Concomitant]
  5. ISOSORBIDE DINITRATE [Concomitant]
  6. OXYBUTYNIN [Concomitant]
  7. SIMVASTATIN [Concomitant]
  8. VITAMIN B6 [Concomitant]
  9. EVEROLIMUS [Suspect]
     Indication: COLORECTAL CANCER
     Dosage: 10 MG PO QD
     Route: 048
     Dates: start: 20110309, end: 20110930
  10. VALSARTAN [Concomitant]
  11. CELEBREX [Concomitant]
  12. PROTONIX [Concomitant]
  13. GLYBURIDE [Concomitant]
  14. NOVASC [Concomitant]
  15. TIVOZANIB [Suspect]
     Indication: COLORECTAL CANCER
     Dosage: 0.5 MG PO QD
     Route: 048
     Dates: start: 20110309, end: 20110930

REACTIONS (1)
  - LOBAR PNEUMONIA [None]
